FAERS Safety Report 18066248 (Version 3)
Quarter: 2020Q3

REPORT INFORMATION
  Report Type: Report from Study
  Country: AU (occurrence: AU)
  Receive Date: 20200724
  Receipt Date: 20200929
  Transmission Date: 20201103
  Serious: Yes (Life-Threatening, Hospitalization, Other)
  Sender: FDA-Public Use
  Company Number: AU-JNJFOC-20200720570

PATIENT
  Age: 45 Year
  Sex: Male

DRUGS (2)
  1. STELARA [Suspect]
     Active Substance: USTEKINUMAB
     Indication: PSORIASIS
     Route: 058
     Dates: start: 20180813, end: 20200911
  2. STELARA [Suspect]
     Active Substance: USTEKINUMAB

REACTIONS (6)
  - Psoriasis [Unknown]
  - Post procedural complication [Unknown]
  - Myocardial infarction [Unknown]
  - Coma [Unknown]
  - Gallbladder operation [Unknown]
  - Sepsis [Unknown]

NARRATIVE: CASE EVENT DATE: 202001
